FAERS Safety Report 9377768 (Version 1)
Quarter: 2013Q3

REPORT INFORMATION
  Report Type: Report from Study
  Country: CZ (occurrence: CZ)
  Receive Date: 20130701
  Receipt Date: 20130701
  Transmission Date: 20140515
  Serious: Yes (Hospitalization)
  Sender: FDA-Public Use
  Company Number: CZ-UCBSA-089733

PATIENT
  Age: 47 Year
  Sex: Female
  Weight: 60 kg

DRUGS (5)
  1. CERTOLIZUMAB PEGOL [Suspect]
     Indication: RHEUMATOID ARTHRITIS
     Route: 058
     Dates: end: 20130501
  2. METHOTREXATE [Concomitant]
     Indication: RHEUMATOID ARTHRITIS
     Dosage: QS
     Route: 058
     Dates: start: 20120620
  3. ACID FOLIC [Concomitant]
     Indication: VITAMIN SUPPLEMENTATION
     Dosage: QS
     Route: 048
     Dates: start: 20101105
  4. CALTRATE PLUS [Concomitant]
     Indication: OSTEOPOROSIS PROPHYLAXIS
     Route: 048
     Dates: start: 20101105
  5. CIPROFLOXACIN [Concomitant]
     Indication: PYELONEPHRITIS
     Route: 048
     Dates: start: 20130505, end: 20130510

REACTIONS (1)
  - Pyelonephritis [Recovered/Resolved]
